FAERS Safety Report 4496827-0 (Version None)
Quarter: 2004Q4

REPORT INFORMATION
  Report Type: 
  Country: None (occurrence: None)
  Receive Date: 20041109
  Receipt Date: 20040909
  Transmission Date: 20050328
  Serious: Yes (Hospitalization, Disabling, Other)
  Sender: FDA-Public Use
  Company Number: US-GLAXOSMITHKLINE-A0525084A

PATIENT
  Age: 39 Year
  Sex: Female
  Weight: 52.7 kg

DRUGS (5)
  1. ZIAGEN [Suspect]
     Indication: HIV INFECTION
     Dosage: 300MG UNKNOWN
     Route: 048
     Dates: start: 20040826, end: 20040914
  2. EPIVIR [Concomitant]
     Indication: HIV INFECTION
     Dates: start: 20040826
  3. KALETRA [Concomitant]
     Indication: HIV INFECTION
     Dates: start: 20040826
  4. ATOVAQUONE [Concomitant]
  5. DIFLUCAN [Concomitant]
     Dosage: 400MG PER DAY

REACTIONS (14)
  - ASTHENIA [None]
  - BLOOD POTASSIUM DECREASED [None]
  - BLOOD PRESSURE DECREASED [None]
  - CHAPPED LIPS [None]
  - CHEILITIS [None]
  - CHILLS [None]
  - EMOTIONAL DISTRESS [None]
  - HEADACHE [None]
  - HYPERSENSITIVITY [None]
  - NAUSEA [None]
  - PHARYNGEAL ERYTHEMA [None]
  - PYREXIA [None]
  - RASH [None]
  - VOMITING [None]
